FAERS Safety Report 10977995 (Version 1)
Quarter: 2015Q2

REPORT INFORMATION
  Report Type: Spontaneous
  Country: GB (occurrence: GB)
  Receive Date: 20150402
  Receipt Date: 20150402
  Transmission Date: 20150821
  Serious: Yes (Hospitalization, Other)
  Sender: FDA-Public Use
  Company Number: GB-TEVA-551162ACC

PATIENT
  Age: 17 Year
  Sex: Female
  Weight: 53 kg

DRUGS (11)
  1. IBUPROFEN. [Concomitant]
     Active Substance: IBUPROFEN
     Dosage: 3 DOSAGE FORMS DAILY; WITH FOOD
     Dates: start: 20150112, end: 20150119
  2. ORTHO EVRA [Concomitant]
     Active Substance: ETHINYL ESTRADIOL\NORELGESTROMIN
     Indication: CONTRACEPTION
     Dosage: USE AS DIRECTED
     Dates: start: 20150309
  3. LINACLOTIDE [Concomitant]
     Active Substance: LINACLOTIDE
     Dosage: 1 DOSAGE FORMS DAILY;
     Dates: start: 20150309
  4. SODIUM PICOSULFATE [Concomitant]
     Active Substance: SODIUM PICOSULFATE
     Dosage: 20 ML DAILY;
     Dates: start: 20141219
  5. ERYTHROMYCIN. [Concomitant]
     Active Substance: ERYTHROMYCIN
     Dosage: 4 DOSAGE FORMS DAILY;
     Dates: start: 20150309, end: 20150316
  6. LAXIDO [Concomitant]
     Active Substance: POLYETHYLENE GLYCOL 3350\POTASSIUM CHLORIDE\SODIUM BICARBONATE\SODIUM CHLORIDE
     Dosage: 8 DOSAGE FORMS DAILY;
     Dates: start: 20140520
  7. NAPROXEN. [Concomitant]
     Active Substance: NAPROXEN
     Dosage: 3 DOSAGE FORMS DAILY; WITH FOOD, WHEN NEEDED ONLY
     Dates: start: 20150309
  8. OMEPRAZOLE. [Concomitant]
     Active Substance: OMEPRAZOLE
     Dosage: 1 DOSAGE FORMS DAILY;
     Dates: start: 20150309
  9. TRAMADOL [Concomitant]
     Active Substance: TRAMADOL
     Dosage: TAKE 1 OR 2
     Dates: start: 20150127, end: 20150221
  10. ZOPICLONE [Concomitant]
     Active Substance: ZOPICLONE
     Dosage: 1 DOSAGE FORMS DAILY; AT NIGHT
     Dates: start: 20150309
  11. TRIMETHOPRIM. [Suspect]
     Active Substance: TRIMETHOPRIM
     Dates: start: 20150309

REACTIONS (1)
  - Lip swelling [Recovered/Resolved]

NARRATIVE: CASE EVENT DATE: 20150320
